FAERS Safety Report 9919697 (Version 1)
Quarter: 2014Q1

REPORT INFORMATION
  Report Type: Spontaneous
  Country: BR (occurrence: BR)
  Receive Date: 20140224
  Receipt Date: 20140224
  Transmission Date: 20141002
  Serious: Yes (Hospitalization)
  Sender: FDA-Public Use
  Company Number: BR-BRISTOL-MYERS SQUIBB COMPANY-20213377

PATIENT
  Age: 79 Year
  Sex: Female

DRUGS (3)
  1. YERVOY [Suspect]
     Dosage: 4 DOSES GIVEN
     Route: 042
     Dates: start: 2013, end: 20131206
  2. LOSARTAN [Concomitant]
     Indication: HYPERTENSION
  3. ESCITALOPRAM [Concomitant]
     Indication: DEPRESSION

REACTIONS (3)
  - Hypophysitis [Recovered/Resolved]
  - Abdominal pain [Recovered/Resolved]
  - Hypotension [Recovered/Resolved]
